FAERS Safety Report 10258569 (Version 1)
Quarter: 2014Q2

REPORT INFORMATION
  Report Type: Spontaneous
  Country: IT (occurrence: IT)
  Receive Date: 20140625
  Receipt Date: 20140625
  Transmission Date: 20141212
  Serious: Yes (Other)
  Sender: FDA-Public Use
  Company Number: IT-MYLANLABS-2014S1014176

PATIENT
  Age: 51 Year
  Sex: Female

DRUGS (4)
  1. MELOXICAM [Suspect]
     Indication: CHEST PAIN
     Dosage: 15 MG DAILY
     Route: 048
     Dates: start: 20140101, end: 20140130
  2. RAMIPRIL [Interacting]
     Indication: CARDIAC FAILURE
     Dosage: 2.5 MG DAILY
     Route: 048
  3. CARDIRENE [Suspect]
     Indication: PLATELET AGGREGATION INHIBITION
     Dosage: 75 MG DAILY
     Route: 048
  4. ANTRA /00661201/ [Suspect]
     Indication: PROPHYLAXIS AGAINST GASTROINTESTINAL ULCER
     Dosage: 20 MG DAILY
     Route: 048

REACTIONS (5)
  - Hyperchlorhydria [Recovering/Resolving]
  - Hypertension [Recovering/Resolving]
  - Presyncope [Recovering/Resolving]
  - Abdominal pain upper [Recovering/Resolving]
  - Drug interaction [Recovering/Resolving]
